FAERS Safety Report 4917203-X (Version None)
Quarter: 2006Q1

REPORT INFORMATION
  Report Type: 
  Country: None (occurrence: None)
  Receive Date: 20060215
  Receipt Date: 20060203
  Transmission Date: 20060701
  Serious: Yes (Disabling, Other)
  Sender: FDA-Public Use
  Company Number: 2005156628

PATIENT
  Sex: Female
  Weight: 56.6996 kg

DRUGS (8)
  1. NEURONTIN [Suspect]
     Indication: FIBROMYALGIA
     Dosage: 2400 MG (800 MG THREE  X/ DAY, INTERVAL: EVERY DAY, ORAL
     Route: 048
     Dates: start: 20040101
  2. ZOLOFT [Suspect]
     Indication: DEPRESSION
     Dosage: (50 MG, DAILY, INTERVAL: EVERY DAY), ORAL
     Route: 048
  3. PROCARDIA [Suspect]
     Indication: ILL-DEFINED DISORDER
  4. FENTANYL [Concomitant]
  5. PLAVIX [Concomitant]
  6. VERAPAMIL [Concomitant]
  7. FOSAMAX [Concomitant]
  8. PAMELOR [Concomitant]

REACTIONS (10)
  - BLOOD PRESSURE INCREASED [None]
  - CEREBROVASCULAR ACCIDENT [None]
  - FIBROMYALGIA [None]
  - HYPOAESTHESIA [None]
  - IMPAIRED WORK ABILITY [None]
  - KNEE ARTHROPLASTY [None]
  - NERVE INJURY [None]
  - OSTEOARTHRITIS [None]
  - SURGICAL PROCEDURE REPEATED [None]
  - TRANSIENT ISCHAEMIC ATTACK [None]
